FAERS Safety Report 8304913 (Version 3)
Quarter: 2012Q4

REPORT INFORMATION
  Report Type: 
  Country: US (occurrence: US)
  Receive Date: 20111221
  Receipt Date: 20121109
  Transmission Date: 20130627
  Serious: Yes (Hospitalization, Other)
  Sender: FDA-Public Use
  Company Number: US-BAYER-2011-119597

PATIENT
  Age: 29 Year
  Sex: Female
  Weight: 90.7 kg

DRUGS (14)
  1. YAZ [Suspect]
     Dosage: UNK
     Route: 048
     Dates: start: 200702, end: 200801
  2. NEXIUM [Concomitant]
  3. SYNTHROID [Concomitant]
  4. ZOLOFT [Concomitant]
  5. CIPRO [Concomitant]
  6. SINGULAIR [Concomitant]
  7. ALLEGRA-D [Concomitant]
  8. XYZAL [Concomitant]
     Indication: MULTIPLE ALLERGIES
     Dosage: UNK
     Dates: start: 2008
  9. LEXAPRO [Concomitant]
     Dosage: 10 mg, UNK
  10. HYDROCORT [Concomitant]
  11. PENICILLIN VK [Concomitant]
     Dosage: 500 mg, UNK
  12. VICODIN [Concomitant]
  13. BACTRIM [Concomitant]
     Indication: URINARY TRACT INFECTION
  14. TORSEMIDE [Concomitant]
     Dosage: 20 mg, QD

REACTIONS (15)
  - Pulmonary embolism [None]
  - Pulmonary embolism [None]
  - Thrombosis [None]
  - Thrombosis [None]
  - Nephrotic syndrome [Recovered/Resolved]
  - Pain [None]
  - General physical health deterioration [None]
  - General physical health deterioration [None]
  - Anxiety [None]
  - Emotional distress [None]
  - Weight fluctuation [Recovered/Resolved]
  - Swelling [Recovered/Resolved]
  - Depression [None]
  - Weight increased [None]
  - Mental disorder [None]
